FAERS Safety Report 14012853 (Version 1)
Quarter: 2017Q3

REPORT INFORMATION
  Report Type: Report from Study
  Country: US (occurrence: US)
  Receive Date: 20170926
  Receipt Date: 20170926
  Transmission Date: 20171128
  Serious: Yes (Other)
  Sender: FDA-Public Use
  Company Number: US-AMGEN-USASL2017142374

PATIENT
  Age: 73 Year
  Sex: Male

DRUGS (2)
  1. REPATHA [Suspect]
     Active Substance: EVOLOCUMAB
     Dosage: UNK
     Route: 065
     Dates: start: 2017, end: 201706
  2. REPATHA [Suspect]
     Active Substance: EVOLOCUMAB
     Indication: BLOOD CHOLESTEROL INCREASED
     Dosage: 140 MG, Q2WK
     Route: 065
     Dates: start: 2016, end: 2016

REACTIONS (9)
  - Fatigue [Unknown]
  - Confusional state [Recovered/Resolved]
  - Muscle rupture [Recovered/Resolved]
  - Arthralgia [Recovered/Resolved]
  - Rhinorrhoea [Recovered/Resolved]
  - Asthenia [Recovered/Resolved]
  - Rotator cuff syndrome [Unknown]
  - Depressed mood [Recovered/Resolved]
  - Tendon discomfort [Recovered/Resolved]

NARRATIVE: CASE EVENT DATE: 2016
